FAERS Safety Report 8232581-4 (Version None)
Quarter: 2012Q1

REPORT INFORMATION
  Report Type: 
  Country: None (occurrence: None)
  Receive Date: 20120321
  Receipt Date: 20120314
  Transmission Date: 20120608
  Serious: Yes (Disabling)
  Sender: FDA-Public Use
  Company Number: 1227863

PATIENT
  Age: 57 Year
  Sex: Female
  Weight: 82.7 kg

DRUGS (2)
  1. GENTAMICIN SULFATE IN SODIUM CHLORIDE 0.9% [Suspect]
     Indication: PRODUCT USED FOR UNKNOWN INDICATION
     Dosage: INTRAVENOUS (NOT OTHERWISE SPECIFIED)
     Route: 042
  2. NEXIUM [Concomitant]

REACTIONS (4)
  - GAIT DISTURBANCE [None]
  - TOXICITY TO VARIOUS AGENTS [None]
  - BALANCE DISORDER [None]
  - FALL [None]
